FAERS Safety Report 25540032 (Version 1)
Quarter: 2025Q3

REPORT INFORMATION
  Report Type: Spontaneous
  Country: US (occurrence: US)
  Receive Date: 20250710
  Receipt Date: 20250710
  Transmission Date: 20251020
  Serious: No
  Sender: Thea Pharma
  Company Number: US-THEA-2025001357

PATIENT
  Sex: Female

DRUGS (3)
  1. IYUZEH [Suspect]
     Active Substance: LATANOPROST
     Indication: Intraocular pressure increased
     Dosage: AT NIGHT
     Route: 047
     Dates: start: 20250521, end: 20250523
  2. DIAMOX SEQUELS [Suspect]
     Active Substance: ACETAZOLAMIDE
     Indication: Intraocular pressure increased
     Dosage: 1 PILL
     Route: 048
     Dates: start: 20250521
  3. SIMBRINZA [Concomitant]
     Active Substance: BRIMONIDINE TARTRATE\BRINZOLAMIDE
     Indication: Eye inflammation
     Route: 047
     Dates: start: 20250521

REACTIONS (1)
  - Blepharitis [Not Recovered/Not Resolved]

NARRATIVE: CASE EVENT DATE: 20250522
